FAERS Safety Report 19106145 (Version 1)
Quarter: 2021Q2

REPORT INFORMATION
  Report Type: Spontaneous
  Country: JP (occurrence: JP)
  Receive Date: 20210407
  Receipt Date: 20210407
  Transmission Date: 20210717
  Serious: Yes (Hospitalization, Other)
  Sender: FDA-Public Use
  Company Number: JP-GLAXOSMITHKLINE-JPCH2021017913

PATIENT
  Sex: Male

DRUGS (2)
  1. BAYASPIRIN [Suspect]
     Active Substance: ASPIRIN
     Indication: ISCHAEMIC CONTRACTURE OF THE LEFT VENTRICLE
     Dosage: UNK
     Route: 048
  2. VOLTAREN [Suspect]
     Active Substance: DICLOFENAC SODIUM
     Indication: ISCHAEMIC CONTRACTURE OF THE LEFT VENTRICLE
     Dosage: UNK
     Route: 048

REACTIONS (5)
  - Faeces discoloured [Unknown]
  - Abdominal pain [Unknown]
  - Anaemia [Unknown]
  - Vomiting [Unknown]
  - Duodenal ulcer haemorrhage [Unknown]
